FAERS Safety Report 7392479-0 (Version None)
Quarter: 2011Q2

REPORT INFORMATION
  Report Type: 
  Country: None (occurrence: None)
  Receive Date: 20110404
  Receipt Date: 20110317
  Transmission Date: 20111010
  Serious: No
  Sender: FDA-Public Use
  Company Number: US-BAYER-2011-027009

PATIENT
  Sex: Female
  Weight: 76 kg

DRUGS (1)
  1. ALEVE [Suspect]
     Indication: DYSMENORRHOEA
     Dosage: 2 DF, Q4HR
     Route: 048
     Dates: start: 20110301

REACTIONS (2)
  - VAGINAL HAEMORRHAGE [None]
  - DYSURIA [None]
